FAERS Safety Report 4308303-6 (Version None)
Quarter: 2004Q1

REPORT INFORMATION
  Report Type: 
  Country: None (occurrence: None)
  Receive Date: 20040301
  Receipt Date: 20031125
  Transmission Date: 20041129
  Serious: No
  Sender: FDA-Public Use
  Company Number: US-BRISTOL-MYERS SQUIBB COMPANY-12443800

PATIENT
  Age: 72 Year
  Sex: Female
  Weight: 72 kg

DRUGS (7)
  1. GLUCOPHAGE [Suspect]
     Indication: DIABETES MELLITUS
     Route: 048
  2. LIPITOR [Concomitant]
  3. EVISTA [Concomitant]
  4. AVANDIA [Concomitant]
  5. CALCIUM [Concomitant]
  6. VITAMIN E [Concomitant]
  7. VITAMIN C [Concomitant]

REACTIONS (1)
  - FLATULENCE [None]
